FAERS Safety Report 5259341-0 (Version None)
Quarter: 2007Q1

REPORT INFORMATION
  Report Type: 
  Country: None (occurrence: None)
  Receive Date: 20070305
  Receipt Date: 20070219
  Transmission Date: 20070707
  Serious: Yes (Hospitalization, Other)
  Sender: FDA-Public Use
  Company Number: 02100-JPN-06-0085

PATIENT
  Age: 78 Year
  Sex: Male

DRUGS (12)
  1. CILOSTAZOL [Suspect]
     Indication: LACUNAR INFARCTION
     Dosage: 200 MG ORAL
     Route: 048
     Dates: start: 20040522
  2. ASPIRIN [Concomitant]
  3. PRAVASTATIN [Concomitant]
  4. SUPLATAST TOSILATE [Concomitant]
  5. LIMAPROST ALFADEX [Concomitant]
  6. MECOBALAMIN [Concomitant]
  7. TOCOPHEROL CONCENTRATE CAP [Concomitant]
  8. IFENPRODIL TARTRATE [Concomitant]
  9. TIAPRIDE HYDROCHLORIDE [Concomitant]
  10. PIPERACILLIN SODIUM [Concomitant]
  11. SENNOSIDE [Concomitant]
  12. SULTAMICILLIN TOSILATE [Concomitant]

REACTIONS (13)
  - ALANINE AMINOTRANSFERASE INCREASED [None]
  - ANAEMIA [None]
  - ASPARTATE AMINOTRANSFERASE INCREASED [None]
  - BLOOD ALKALINE PHOSPHATASE INCREASED [None]
  - BLOOD LACTATE DEHYDROGENASE INCREASED [None]
  - CARDIAC FAILURE [None]
  - ELECTROCARDIOGRAM ABNORMAL [None]
  - ELECTROCARDIOGRAM PR SHORTENED [None]
  - HEPATIC FUNCTION ABNORMAL [None]
  - HYPERTENSION [None]
  - PLEURAL EFFUSION [None]
  - PNEUMONIA [None]
  - WHITE BLOOD CELL COUNT DECREASED [None]
